FAERS Safety Report 13005349 (Version 1)
Quarter: 2016Q4

REPORT INFORMATION
  Report Type: Spontaneous
  Country: US (occurrence: US)
  Receive Date: 20161207
  Receipt Date: 20161207
  Transmission Date: 20170207
  Serious: Yes (Other)
  Sender: FDA-Public Use
  Company Number: US-CLINIGEN GROUP PLC/ CLINIGEN HEALTHCARE LTD-E2B_00002203

PATIENT
  Age: 63 Year
  Sex: Female
  Weight: 120 kg

DRUGS (13)
  1. ETHYOL [Suspect]
     Active Substance: AMIFOSTINE
     Indication: PROPHYLAXIS
     Dosage: 400 MG 5XWK 1 DAY(S)
     Route: 042
     Dates: start: 20020426, end: 20020426
  2. COVERA HS (VERAPAMIL HCL SR) [Concomitant]
     Route: 065
  3. LORAZEPAM. [Concomitant]
     Active Substance: LORAZEPAM
     Route: 065
  4. PRILOSEC [Concomitant]
     Active Substance: OMEPRAZOLE MAGNESIUM
     Route: 065
  5. ALBUTEROL. [Concomitant]
     Active Substance: ALBUTEROL
     Route: 065
  6. GAVISCON [Concomitant]
     Active Substance: ALUMINUM HYDROXIDE\MAGNESIUM CARBONATE
     Route: 065
  7. GLUCOVANCE (GLYBURIDE/METFORMIN) [Concomitant]
     Route: 065
  8. NITROSTAT [Concomitant]
     Active Substance: NITROGLYCERIN
     Route: 065
  9. VIOXX [Concomitant]
     Active Substance: ROFECOXIB
     Route: 065
  10. LASIX [Concomitant]
     Active Substance: FUROSEMIDE
     Route: 065
  11. K-DUR [Concomitant]
     Active Substance: POTASSIUM CHLORIDE
     Route: 065
  12. ROXICET [Concomitant]
     Active Substance: ACETAMINOPHEN\OXYCODONE HYDROCHLORIDE
     Route: 065
  13. LANOXIN [Concomitant]
     Active Substance: DIGOXIN
     Route: 065

REACTIONS (1)
  - Skin necrosis [Recovering/Resolving]

NARRATIVE: CASE EVENT DATE: 20020427
